FAERS Safety Report 17919277 (Version 1)
Quarter: 2020Q2

REPORT INFORMATION
  Report Type: Spontaneous
  Country: US (occurrence: US)
  Receive Date: 20200619
  Receipt Date: 20200619
  Transmission Date: 20200714
  Serious: Yes (Other)
  Sender: FDA-Public Use
  Company Number: US-DUCHESNAY-2020US000065

PATIENT
  Sex: Female

DRUGS (3)
  1. OSPHENA [Suspect]
     Active Substance: OSPEMIFENE
     Indication: DYSPAREUNIA
     Dosage: UNK
  2. COUMADIN [Concomitant]
     Active Substance: WARFARIN SODIUM
     Indication: HEART VALVE REPLACEMENT
  3. STEROIDS [Concomitant]
     Active Substance: UNSPECIFIED INGREDIENT
     Indication: PANCREAS TRANSPLANT

REACTIONS (11)
  - Migraine [Unknown]
  - Drug interaction [Unknown]
  - Nasal dryness [Unknown]
  - Dry skin [Unknown]
  - Chapped lips [Unknown]
  - Lip haemorrhage [Unknown]
  - Coital bleeding [Unknown]
  - Vulvovaginal injury [Unknown]
  - Rash [Unknown]
  - Rhinalgia [Unknown]
  - Solar lentigo [Unknown]
